FAERS Safety Report 9013248 (Version 3)
Quarter: 2013Q4

REPORT INFORMATION
  Report Type: Report from Study
  Country: CA (occurrence: CA)
  Receive Date: 20130114
  Receipt Date: 20131011
  Transmission Date: 20140711
  Serious: Yes (Hospitalization, Other)
  Sender: FDA-Public Use
  Company Number: PHHY2012CA046862

PATIENT
  Age: 69 Year
  Sex: Female

DRUGS (1)
  1. CLOZARIL [Suspect]
     Dates: start: 20030618

REACTIONS (4)
  - Chronic obstructive pulmonary disease [Unknown]
  - Emphysema [Unknown]
  - Pneumonia [Unknown]
  - Thrombophlebitis [Unknown]
